FAERS Safety Report 8180994-1 (Version None)
Quarter: 2012Q1

REPORT INFORMATION
  Report Type: 
  Country: None (occurrence: None)
  Receive Date: 20120302
  Receipt Date: 20120227
  Transmission Date: 20120608
  Serious: Yes (Other)
  Sender: FDA-Public Use
  Company Number: CA-GLAXOSMITHKLINE-A0648591A

PATIENT
  Age: 58 Year
  Sex: Female

DRUGS (12)
  1. TYLENOL-500 [Concomitant]
     Indication: ARTHRITIS
  2. GLUCONORM [Concomitant]
     Indication: DIABETES MELLITUS
     Route: 048
     Dates: start: 19970101
  3. UNSPECIFIED MEDICATIONS [Concomitant]
     Indication: IRRITABLE BOWEL SYNDROME
  4. ACEBUTOLOL [Concomitant]
     Indication: CARDIAC DISORDER
     Dosage: 100MG PER DAY
     Dates: start: 19970101
  5. METAMUCIL-2 [Concomitant]
     Indication: IRRITABLE BOWEL SYNDROME
  6. ACETYLSALICYLIC ACID SRT [Concomitant]
     Indication: GASTRIC DISORDER
     Dosage: 325MG PER DAY
     Dates: start: 19970101
  7. TYLENOL W/ CODEINE [Suspect]
     Indication: PAIN
     Dates: start: 20070401, end: 20070407
  8. SEROQUEL [Concomitant]
     Indication: NERVOUSNESS
     Dosage: 350MG PER DAY
  9. CALCIUM [Concomitant]
     Indication: OSTEOPOROSIS
     Dates: start: 19970101
  10. NICODERM [Suspect]
     Dosage: 21MG PER DAY
     Route: 062
     Dates: start: 20070301, end: 20070407
  11. RAMIPRIL [Concomitant]
     Indication: CARDIAC DISORDER
  12. ASPIRIN [Concomitant]
     Indication: CARDIAC DISORDER

REACTIONS (12)
  - TREMOR [None]
  - NICOTINE DEPENDENCE [None]
  - HALLUCINATION [None]
  - PRESYNCOPE [None]
  - CHEST PAIN [None]
  - DYSSTASIA [None]
  - NERVOUSNESS [None]
  - DIZZINESS [None]
  - APPLICATION SITE PAIN [None]
  - RIB FRACTURE [None]
  - INTENTIONAL DRUG MISUSE [None]
  - IRRITABILITY [None]
